FAERS Safety Report 15822643 (Version 2)
Quarter: 2019Q1

REPORT INFORMATION
  Report Type: Spontaneous
  Country: BE (occurrence: BE)
  Receive Date: 20190114
  Receipt Date: 20190205
  Transmission Date: 20190417
  Serious: Yes (Hospitalization, Other)
  Sender: FDA-Public Use
  Company Number: BE-SA-2019SA006767

PATIENT
  Age: 46 Year
  Sex: Male

DRUGS (4)
  1. TAMSULOSIN [Concomitant]
     Active Substance: TAMSULOSIN
     Indication: LOWER URINARY TRACT SYMPTOMS
     Dosage: 0.4 G, QD
     Route: 048
  2. LEMTRADA [Suspect]
     Active Substance: ALEMTUZUMAB
     Dosage: UNK
     Route: 041
  3. SERTRALINE [Concomitant]
     Active Substance: SERTRALINE HYDROCHLORIDE
     Indication: DEPRESSION
     Dosage: 50 G, QD
     Route: 048
  4. PARACETAMOL [Concomitant]
     Active Substance: ACETAMINOPHEN
     Dosage: 1 G, PRN
     Route: 048

REACTIONS (17)
  - Mean cell volume abnormal [Unknown]
  - Mean cell haemoglobin concentration abnormal [Unknown]
  - Hypothyroidism [Not Recovered/Not Resolved]
  - Immune thrombocytopenic purpura [Unknown]
  - Petechiae [Unknown]
  - B-lymphocyte count abnormal [Unknown]
  - Mean cell haemoglobin [Unknown]
  - Red blood cell count abnormal [Unknown]
  - Neutrophil count abnormal [Unknown]
  - Haematocrit abnormal [Unknown]
  - T-lymphocyte count abnormal [Unknown]
  - White blood cell count abnormal [Unknown]
  - Monocyte count abnormal [Unknown]
  - Eosinophil count abnormal [Unknown]
  - Basophil count abnormal [Unknown]
  - Haemoglobin abnormal [Unknown]
  - Platelet count decreased [Not Recovered/Not Resolved]

NARRATIVE: CASE EVENT DATE: 201812
